FAERS Safety Report 5324516-9 (Version None)
Quarter: 2007Q2

REPORT INFORMATION
  Report Type: 
  Country: None (occurrence: None)
  Receive Date: 20070508
  Receipt Date: 20070427
  Transmission Date: 20071010
  Serious: Yes (Other)
  Sender: FDA-Public Use
  Company Number: 2007JP001904

PATIENT
  Age: 57 Year
  Sex: Female

DRUGS (4)
  1. FUNGUARD (MICAFUNGIN) INJECTION [Suspect]
     Dosage: 150 MG, UNKNOWN/D, IV DRIP
     Route: 041
     Dates: start: 20070425, end: 20070425
  2. SOLU-MEDROL [Suspect]
     Dosage: 500 MG, UNKNOWN/D, IV DRIP
     Route: 041
     Dates: start: 20070425, end: 20070425
  3. NORVASC [Concomitant]
  4. LEVOFLOXACIN [Suspect]
     Dosage: 100 MG, ORAL
     Route: 048
     Dates: start: 20070421, end: 20070424

REACTIONS (5)
  - ANAPHYLACTIC SHOCK [None]
  - DIALYSIS [None]
  - ELECTROCARDIOGRAM QT PROLONGED [None]
  - HYPOMAGNESAEMIA [None]
  - VENTRICULAR TACHYCARDIA [None]
